FAERS Safety Report 22832145 (Version 3)
Quarter: 2024Q1

REPORT INFORMATION
  Report Type: Report from Study
  Country: CA (occurrence: CA)
  Receive Date: 20230817
  Receipt Date: 20240227
  Transmission Date: 20240409
  Serious: Yes (Hospitalization)
  Sender: FDA-Public Use
  Company Number: CA-JNJFOC-20230812697

PATIENT
  Age: 14 Year
  Sex: Female
  Weight: 41 kg

DRUGS (3)
  1. STELARA [Suspect]
     Active Substance: USTEKINUMAB
     Indication: Crohn^s disease
     Route: 058
     Dates: start: 20230516
  2. STELARA [Suspect]
     Active Substance: USTEKINUMAB
     Route: 042
  3. STELARA [Suspect]
     Active Substance: USTEKINUMAB
     Dosage: STELARA STOPPED
     Route: 058
     Dates: start: 2023, end: 20230901

REACTIONS (4)
  - Malaise [Not Recovered/Not Resolved]
  - Weight decreased [Not Recovered/Not Resolved]
  - Abdominal pain [Not Recovered/Not Resolved]
  - Drug ineffective [Unknown]

NARRATIVE: CASE EVENT DATE: 20230101
